FAERS Safety Report 4534428-6 (Version None)
Quarter: 2004Q4

REPORT INFORMATION
  Report Type: 
  Country: None (occurrence: None)
  Receive Date: 20041220
  Receipt Date: 20041220
  Transmission Date: 20050328
  Serious: No
  Sender: FDA-Public Use
  Company Number: None

PATIENT
  Age: 45 Year
  Sex: Male
  Weight: 85 kg

DRUGS (3)
  1. ZOSYN [Suspect]
     Indication: OSTEOMYELITIS
     Dosage: 3.375 G Q 6 HRS IV
     Route: 042
     Dates: start: 20041025, end: 20041115
  2. ZOSYN [Suspect]
  3. ZOSYN [Suspect]

REACTIONS (4)
  - BLOOD TEST ABNORMAL [None]
  - CATHETER RELATED INFECTION [None]
  - CHILLS [None]
  - PYREXIA [None]
